FAERS Safety Report 20171302 (Version 1)
Quarter: 2021Q4

REPORT INFORMATION
  Report Type: Report from Study
  Country: GB (occurrence: GB)
  Receive Date: 20211210
  Receipt Date: 20211210
  Transmission Date: 20220303
  Serious: Yes (Death)
  Sender: FDA-Public Use
  Company Number: GB-ROCHE-2770696

PATIENT
  Age: 73 Year
  Sex: Male
  Weight: 73 kg

DRUGS (27)
  1. CARBOPLATIN [Suspect]
     Active Substance: CARBOPLATIN
     Indication: Small cell lung cancer extensive stage
     Dosage: 500 MG (DOSE OF STUDY DRUG FIRST ADMINISTERED: 500 MG)
     Dates: start: 20200818
  2. CARBOPLATIN [Suspect]
     Active Substance: CARBOPLATIN
     Dosage: UNK
  3. ETOPOSIDE [Suspect]
     Active Substance: ETOPOSIDE
     Indication: Small cell lung cancer extensive stage
     Dosage: UNK, 1X/DAY
     Dates: start: 20200909, end: 20200910
  4. ETOPOSIDE [Suspect]
     Active Substance: ETOPOSIDE
     Dosage: UNK, 1X/DAY
     Dates: start: 20200818, end: 20200820
  5. ETOPOSIDE [Suspect]
     Active Substance: ETOPOSIDE
     Dosage: UNK, 1X/DAY
     Dates: start: 20200930, end: 20201001
  6. ETOPOSIDE [Suspect]
     Active Substance: ETOPOSIDE
     Dosage: UNK, 1X/DAY
     Dates: start: 20201021, end: 20201022
  7. ETOPOSIDE [Suspect]
     Active Substance: ETOPOSIDE
     Dosage: 350 MG, 1X/DAY
  8. ETOPOSIDE [Suspect]
     Active Substance: ETOPOSIDE
     Dosage: 350 MG
     Dates: start: 20200818
  9. ATEZOLIZUMAB [Suspect]
     Active Substance: ATEZOLIZUMAB
     Indication: Small cell lung cancer extensive stage
     Dosage: 1200 MG, EVERY 3 WEEKS (ON 08SEP2020, 29SEP2020, AND ON 20OCT2020 1200 MG RECEIVED DOSE)
     Route: 042
     Dates: start: 20200818
  10. ATEZOLIZUMAB [Suspect]
     Active Substance: ATEZOLIZUMAB
     Dosage: 6720 MG, WEEKLY (ON 21DEC2020 AND ON 18JAN2021 RECEIVED SAME DOSE OF 1680 MG)
     Route: 042
     Dates: start: 20201123
  11. ATEZOLIZUMAB [Suspect]
     Active Substance: ATEZOLIZUMAB
     Dosage: UNK (ON 20OCT2020 HE AGAIN RECEIVED IV ATEZOLIZUMAB DOSE ONCE IN 4 WEEKS)
     Dates: start: 20201020
  12. ATEZOLIZUMAB [Suspect]
     Active Substance: ATEZOLIZUMAB
     Dosage: 1200 MG, EVERY 3 WEEKS (ON 08SEP2020, 29SEP2020, AND ON 20OCT2020 1200 MG RECEIVED DOSE)
     Route: 042
     Dates: start: 20200818
  13. ATEZOLIZUMAB [Suspect]
     Active Substance: ATEZOLIZUMAB
     Dosage: 1200 MG, EVERY 3 WEEKS (ON 08SEP2020, 29SEP2020, AND ON 20OCT2020 1200 MG RECEIVED DOSE)
     Route: 042
     Dates: start: 20200908
  14. ATEZOLIZUMAB [Suspect]
     Active Substance: ATEZOLIZUMAB
     Dosage: 1200 MG, EVERY 3 WEEKS (ON 08SEP2020, 29SEP2020, AND ON 20OCT2020 1200 MG RECEIVED DOSE)
     Route: 042
     Dates: start: 20200929
  15. ATEZOLIZUMAB [Suspect]
     Active Substance: ATEZOLIZUMAB
     Dosage: 1200 MG, EVERY 3 WEEKS (ON 08SEP2020, 29SEP2020, AND ON 20OCT2020 1200 MG RECEIVED DOSE)
     Route: 042
     Dates: start: 20201020
  16. BETAMETHASONE VALERATE [Concomitant]
     Active Substance: BETAMETHASONE VALERATE
     Indication: Rash
     Dosage: UNK
     Dates: start: 20200901
  17. CHLORHEXIDINE GLUCONATE [Concomitant]
     Active Substance: CHLORHEXIDINE GLUCONATE
     Indication: Mucosal inflammation
     Dosage: UNK
     Dates: start: 202008, end: 20200907
  18. CHLORHEXIDINE GLUCONATE [Concomitant]
     Active Substance: CHLORHEXIDINE GLUCONATE
     Indication: Mucosal inflammation
  19. DEXAMETHASONE [Concomitant]
     Active Substance: DEXAMETHASONE
     Indication: Premedication
     Dosage: 8 MG
     Dates: start: 20200929, end: 20200929
  20. DIFFLAM [Concomitant]
     Indication: Rash
     Dosage: UNK
     Dates: start: 20200901
  21. DIFFLAM [Concomitant]
     Indication: Rash
  22. DULCOLAX STOOL SOFTENER [Concomitant]
     Active Substance: DOCUSATE SODIUM
     Dosage: UNK
  23. HUMULIN L [Concomitant]
     Active Substance: INSULIN HUMAN
     Indication: Type 2 diabetes mellitus
     Dosage: UNK
     Dates: start: 202006
  24. METFORMIN [Concomitant]
     Active Substance: METFORMIN HYDROCHLORIDE
     Indication: Type 2 diabetes mellitus
     Dosage: UNK
     Dates: start: 202006
  25. ONDANSETRON [Concomitant]
     Active Substance: ONDANSETRON
     Indication: Premedication
     Dosage: 8 MG
     Dates: start: 20201020, end: 20201020
  26. ONDANSETRON [Concomitant]
     Active Substance: ONDANSETRON
     Dosage: 8 MG
     Dates: start: 20200929, end: 20200929
  27. ZOPICLONE [Concomitant]
     Active Substance: ZOPICLONE
     Indication: Insomnia
     Dosage: UNK
     Dates: start: 20200908

REACTIONS (2)
  - Death [Fatal]
  - Palmar-plantar erythrodysaesthesia syndrome [Recovered/Resolved]

NARRATIVE: CASE EVENT DATE: 20200929
